FAERS Safety Report 20639668 (Version 4)
Quarter: 2022Q2

REPORT INFORMATION
  Report Type: Spontaneous
  Country: US (occurrence: US)
  Receive Date: 20220326
  Receipt Date: 20220404
  Transmission Date: 20220721
  Serious: Yes (Hospitalization, Other)
  Sender: FDA-Public Use
  Company Number: US-SANOFI-01019651

PATIENT
  Age: 64 Year
  Sex: Female

DRUGS (1)
  1. LANTUS SOLOSTAR [Suspect]
     Active Substance: INSULIN GLARGINE
     Dosage: UNK

REACTIONS (9)
  - Kidney transplant rejection [Unknown]
  - Diabetes mellitus inadequate control [Unknown]
  - Renal impairment [Unknown]
  - Pyrexia [Unknown]
  - Dizziness [Unknown]
  - Renal disorder [Unknown]
  - Renal transplant [Unknown]
  - Back injury [Unknown]
  - Incorrect dose administered by device [Unknown]
